FAERS Safety Report 25312861 (Version 1)
Quarter: 2025Q2

REPORT INFORMATION
  Report Type: Report from Study
  Country: ES (occurrence: ES)
  Receive Date: 20250514
  Receipt Date: 20250514
  Transmission Date: 20250717
  Serious: Yes (Other)
  Sender: RADIUS PHARM
  Company Number: ES-THERAMEX-2025001299

PATIENT
  Sex: Female

DRUGS (1)
  1. ABALOPARATIDE [Suspect]
     Active Substance: ABALOPARATIDE
     Indication: Osteoporosis
     Dosage: 1 DOSAGE FORM, QD (1 INJECTION/24H, DAILY)
     Route: 058

REACTIONS (7)
  - Thrombosis [Unknown]
  - Hypertension [Unknown]
  - Discomfort [Unknown]
  - Pain [Unknown]
  - Heart rate increased [Unknown]
  - Headache [Unknown]
  - Therapy cessation [Unknown]
